FAERS Safety Report 8913801 (Version 1)
Quarter: 2012Q4

REPORT INFORMATION
  Report Type: 
  Country: GB (occurrence: GB)
  Receive Date: 20121119
  Receipt Date: 20121119
  Transmission Date: 20130627
  Serious: Yes (Other)
  Sender: FDA-Public Use
  Company Number: GB-ACCORD-015248

PATIENT
  Sex: Female

DRUGS (1)
  1. SIMVASTATIN [Suspect]
     Indication: PROPHYLAXIS

REACTIONS (6)
  - Anaemia [Unknown]
  - Muscle atrophy [Unknown]
  - Gait disturbance [Unknown]
  - Urinary tract infection [Unknown]
  - Weight decreased [Unknown]
  - Diverticulitis intestinal haemorrhagic [Unknown]
